FAERS Safety Report 4946975-3 (Version None)
Quarter: 2006Q1

REPORT INFORMATION
  Report Type: 
  Country: None (occurrence: None)
  Receive Date: 20060131
  Receipt Date: 20051124
  Transmission Date: 20060701
  Serious: No
  Sender: FDA-Public Use
  Company Number: 200519845US

PATIENT
  Age: 46 Year
  Sex: Female

DRUGS (1)
  1. KETEK [Suspect]
     Indication: SINUSITIS
     Dosage: 800 MG QD PO
     Route: 048
     Dates: start: 20051122

REACTIONS (4)
  - ASTHENOPIA [None]
  - FEELING DRUNK [None]
  - PALPITATIONS [None]
  - VISUAL DISTURBANCE [None]
